FAERS Safety Report 7393529-8 (Version None)
Quarter: 2011Q2

REPORT INFORMATION
  Report Type: 
  Country: None (occurrence: None)
  Receive Date: 20110405
  Receipt Date: 20110322
  Transmission Date: 20111010
  Serious: Yes (Hospitalization)
  Sender: FDA-Public Use
  Company Number: US-JNJFOC-20110310693

PATIENT
  Sex: Male

DRUGS (8)
  1. ALBUTEROL [Concomitant]
     Indication: ASTHMA
     Route: 055
  2. CELEBREX [Concomitant]
     Indication: ARTHRITIS
     Route: 048
  3. SYMBICORT [Concomitant]
     Indication: ASTHMA
     Route: 055
  4. DURAGESIC-100 [Suspect]
     Indication: PAIN
     Route: 062
  5. SINGULAIR [Concomitant]
     Indication: SEASONAL ALLERGY
     Route: 048
  6. NORVASC [Concomitant]
     Indication: HYPERTENSION
     Route: 048
  7. FLONASE [Concomitant]
     Indication: SEASONAL ALLERGY
     Route: 055
  8. VICODIN [Concomitant]
     Indication: BREAKTHROUGH PAIN

REACTIONS (5)
  - DRUG EFFECT DECREASED [None]
  - WRONG TECHNIQUE IN DRUG USAGE PROCESS [None]
  - DRUG EFFECT INCREASED [None]
  - PRODUCT ADHESION ISSUE [None]
  - ARTHROPATHY [None]
